FAERS Safety Report 10987839 (Version 2)
Quarter: 2015Q2

REPORT INFORMATION
  Report Type: Spontaneous
  Country: US (occurrence: US)
  Receive Date: 20150404
  Receipt Date: 20150525
  Transmission Date: 20150821
  Serious: No
  Sender: FDA-Public Use
  Company Number: US-JNJFOC-20140717590

PATIENT
  Age: 65 Year
  Sex: Female
  Weight: 90.7 kg

DRUGS (2)
  1. ZITHROMAX [Concomitant]
     Active Substance: AZITHROMYCIN DIHYDRATE
     Indication: SINUSITIS
     Route: 065
     Dates: end: 20140721
  2. REMICADE [Suspect]
     Active Substance: INFLIXIMAB
     Indication: RHEUMATOID ARTHRITIS
     Route: 042
     Dates: start: 2011

REACTIONS (2)
  - Tenderness [Unknown]
  - Sinus congestion [Unknown]

NARRATIVE: CASE EVENT DATE: 20140717
